FAERS Safety Report 8357112-X (Version None)
Quarter: 2012Q2

REPORT INFORMATION
  Report Type: 
  Country: None (occurrence: None)
  Receive Date: 20120514
  Receipt Date: 20120502
  Transmission Date: 20120825
  Serious: Yes (Hospitalization)
  Sender: FDA-Public Use
  Company Number: GB-ROCHE-1065226

PATIENT
  Sex: Male

DRUGS (4)
  1. XELODA [Suspect]
     Indication: GASTRIC CANCER
     Dosage: LAST DOSE PRIOR SAE 26 DEC 2011
     Route: 048
     Dates: start: 20111024
  2. AVASTIN [Suspect]
     Indication: GASTRIC CANCER
     Dosage: LAST DOSE PRIOR SAE 05 DEC 2011
     Route: 042
     Dates: start: 20111024
  3. CISPLATIN [Suspect]
     Indication: GASTRIC CANCER
     Dosage: LAST DOSE PRIOR SAE 05 DEC 2011
     Route: 042
     Dates: start: 20111024
  4. EPIRUBICIN HYDROCHLORIDE [Suspect]
     Indication: GASTRIC CANCER
     Dosage: LAST DOSE PRIOR SAE 05 DEC 2011
     Route: 042
     Dates: start: 20111024

REACTIONS (1)
  - ANASTOMOTIC LEAK [None]
